FAERS Safety Report 4847734-2 (Version None)
Quarter: 2005Q4

REPORT INFORMATION
  Report Type: 
  Country: None (occurrence: None)
  Receive Date: 20051205
  Receipt Date: 20040112
  Transmission Date: 20060501
  Serious: Yes (Hospitalization)
  Sender: FDA-Public Use
  Company Number: GXKR2004GB00889

PATIENT
  Age: 51 Year
  Sex: Male

DRUGS (3)
  1. ASPIRIN [Suspect]
     Indication: PAIN
     Dosage: 300 MG, ORAL
     Route: 048
     Dates: start: 20031201, end: 20031209
  2. PARACETAMOL (PARACETAMOL) [Suspect]
     Indication: PAIN
     Dosage: 200 MG, ORAL
     Route: 048
     Dates: start: 20031201, end: 20031209
  3. CAFFEINE (CAFFEINE) [Suspect]
     Indication: PAIN
     Dosage: 45 MG, PRN, ORAL
     Route: 048
     Dates: start: 20031201, end: 20031209

REACTIONS (8)
  - BLOOD CREATININE INCREASED [None]
  - DIARRHOEA [None]
  - EROSIVE DUODENITIS [None]
  - FAECES DISCOLOURED [None]
  - GASTRIC ULCER [None]
  - HAEMATEMESIS [None]
  - HAEMOGLOBIN DECREASED [None]
  - HELICOBACTER INFECTION [None]
